FAERS Safety Report 18023774 (Version 2)
Quarter: 2020Q3

REPORT INFORMATION
  Report Type: Spontaneous
  Country: US (occurrence: US)
  Receive Date: 20200715
  Receipt Date: 20200721
  Transmission Date: 20201103
  Serious: Yes (Hospitalization, Other)
  Sender: FDA-Public Use
  Company Number: US-009507513-2007USA003838

PATIENT
  Sex: Female

DRUGS (2)
  1. KEYTRUDA [Suspect]
     Active Substance: PEMBROLIZUMAB
     Indication: HORMONE RECEPTOR POSITIVE BREAST CANCER
     Dosage: UNK
     Dates: start: 201601, end: 201603
  2. ERIBULIN MESYLATE [Suspect]
     Active Substance: ERIBULIN MESYLATE
     Indication: HORMONE RECEPTOR POSITIVE BREAST CANCER
     Dosage: UNK
     Dates: start: 201601, end: 201603

REACTIONS (16)
  - Medical induction of coma [Recovered/Resolved]
  - Pyrexia [Unknown]
  - Gait inability [Recovered/Resolved]
  - Alopecia [Unknown]
  - Triple negative breast cancer [Unknown]
  - Basal cell carcinoma [Unknown]
  - Dysstasia [Recovered/Resolved]
  - Asthenia [Unknown]
  - Dialysis [Unknown]
  - Decreased appetite [Unknown]
  - Malignant melanoma [Unknown]
  - Dysphagia [Recovered/Resolved]
  - Vomiting [Unknown]
  - Weight decreased [Unknown]
  - Rash [Unknown]
  - Product use in unapproved indication [Unknown]
